FAERS Safety Report 7522497-0 (Version None)
Quarter: 2011Q2

REPORT INFORMATION
  Report Type: 
  Country: None (occurrence: None)
  Receive Date: 20110603
  Receipt Date: 20110525
  Transmission Date: 20111010
  Serious: Yes (Hospitalization)
  Sender: FDA-Public Use
  Company Number: IT-JNJFOC-20110511349

PATIENT
  Age: 30 Year
  Sex: Male

DRUGS (1)
  1. LEVOFLOXACIN [Suspect]
     Indication: PRODUCT USED FOR UNKNOWN INDICATION
     Route: 048
     Dates: start: 20110315, end: 20110315

REACTIONS (6)
  - HYPERSENSITIVITY [None]
  - RASH PAPULAR [None]
  - DYSPHONIA [None]
  - COUGH [None]
  - PRURITUS [None]
  - PHARYNGEAL ERYTHEMA [None]
